FAERS Safety Report 12187721 (Version 1)
Quarter: 2016Q1

REPORT INFORMATION
  Report Type: Spontaneous
  Country: US (occurrence: US)
  Receive Date: 20160317
  Receipt Date: 20160317
  Transmission Date: 20160526
  Serious: Yes (Other)
  Sender: FDA-Public Use
  Company Number: US-GE HEALTHCARE MEDICAL DIAGNOSTICS-OSCN-PR-1603L-0040

PATIENT
  Age: 30 Year

DRUGS (5)
  1. MAGNEVIST [Suspect]
     Active Substance: GADOPENTETATE DIMEGLUMINE
  2. OMNISCAN [Suspect]
     Active Substance: GADODIAMIDE
     Indication: DIAGNOSTIC PROCEDURE
  3. OMNISCAN [Suspect]
     Active Substance: GADODIAMIDE
     Indication: GLIOBLASTOMA
     Dosage: DOSE NOT REPORTED
     Route: 065
  4. PROHANCE [Suspect]
     Active Substance: GADOTERIDOL
  5. MULTIHANCE [Suspect]
     Active Substance: GADOBENATE DIMEGLUMINE

REACTIONS (4)
  - Joint contracture [Unknown]
  - Biopsy skin abnormal [Unknown]
  - Nuclear magnetic resonance imaging abnormal [Unknown]
  - Dermatitis [Unknown]
